FAERS Safety Report 20139644 (Version 1)
Quarter: 2021Q4

REPORT INFORMATION
  Report Type: Spontaneous
  Country: None (occurrence: US)
  Receive Date: 20211202
  Receipt Date: 20211202
  Transmission Date: 20220304
  Serious: No
  Sender: FDA-Public Use
  Company Number: US-Ascent Pharmaceuticals, Inc.-2122590

PATIENT
  Age: 71 Year
  Sex: Female
  Weight: 68.182 kg

DRUGS (1)
  1. HYDROCODONE BITARTRATE AND ACETAMINOPHEN [Suspect]
     Active Substance: ACETAMINOPHEN\HYDROCODONE BITARTRATE
     Indication: Osteoporosis
     Route: 048

REACTIONS (5)
  - Headache [Not Recovered/Not Resolved]
  - Hangover [Not Recovered/Not Resolved]
  - Therapeutic product effect variable [Unknown]
  - Unevaluable event [Unknown]
  - Product substitution issue [Unknown]

NARRATIVE: CASE EVENT DATE: 20211025
